FAERS Safety Report 19761839 (Version 1)
Quarter: 2021Q3

REPORT INFORMATION
  Report Type: Other
  Country: US (occurrence: US)
  Receive Date: 20210830
  Receipt Date: 20210830
  Transmission Date: 20211014
  Serious: Yes (Other)
  Sender: FDA-Public Use
  Company Number: US-APOTEX-2021AP040972

PATIENT
  Age: 39 Year
  Sex: Female

DRUGS (2)
  1. ZANTAC [Suspect]
     Active Substance: RANITIDINE HYDROCHLORIDE
     Indication: DYSPEPSIA
     Dosage: DAILY (2X/DAY)
     Route: 065
     Dates: start: 198301, end: 202001
  2. RANITIDINE TABLETS [Suspect]
     Active Substance: RANITIDINE HYDROCHLORIDE
     Indication: DYSPEPSIA
     Dosage: DAILY (2X/DAY)
     Route: 065
     Dates: start: 198301, end: 202001

REACTIONS (5)
  - Breast cancer [Unknown]
  - Gastric cancer [Unknown]
  - Lung neoplasm malignant [Not Recovered/Not Resolved]
  - Pancreatic carcinoma [Unknown]
  - Uterine cancer [Unknown]

NARRATIVE: CASE EVENT DATE: 20040101
